FAERS Safety Report 8362141 (Version 5)
Quarter: 2013Q4

REPORT INFORMATION
  Report Type: Report from Study
  Country: US (occurrence: US)
  Receive Date: 20120130
  Receipt Date: 20131127
  Transmission Date: 20140711
  Serious: Yes (Hospitalization)
  Sender: FDA-Public Use
  Company Number: US-ACTELION-A-NJ2012-60117

PATIENT
  Age: 64 Year
  Sex: Female

DRUGS (9)
  1. TRACLEER [Suspect]
     Indication: PULMONARY ARTERIAL HYPERTENSION
     Dosage: UNK
     Route: 048
     Dates: start: 20100401, end: 201201
  2. ASPIRIN [Concomitant]
     Dosage: 81 MG, QD
  3. LIPITOR [Concomitant]
     Dosage: 60 MG, QD
  4. COREG [Concomitant]
     Dosage: 25 MG, BID
  5. PLAVIX [Concomitant]
     Dosage: 75 MG, QD
  6. NOVOLOG [Concomitant]
     Dosage: 12 U, WITH MEALS
  7. LANTUS [Concomitant]
     Dosage: 45 U, QPM
  8. MULTIVITAMIN [Concomitant]
  9. PROCARDIA [Concomitant]

REACTIONS (6)
  - Liver function test abnormal [Unknown]
  - Convulsion [Recovered/Resolved]
  - Cerebrovascular accident [Recovered/Resolved with Sequelae]
  - Hemiparesis [Recovered/Resolved with Sequelae]
  - Pneumonia [Recovered/Resolved]
  - Therapy cessation [Unknown]
